FAERS Safety Report 16980426 (Version 1)
Quarter: 2019Q4

REPORT INFORMATION
  Report Type: Spontaneous
  Country: FR (occurrence: FR)
  Receive Date: 20191031
  Receipt Date: 20191031
  Transmission Date: 20200122
  Serious: Yes (Death)
  Sender: FDA-Public Use
  Company Number: FR-CELGENEUS-FRA-20191011036

PATIENT

DRUGS (1)
  1. ENASIDENIB [Suspect]
     Active Substance: ENASIDENIB
     Indication: PRODUCT USED FOR UNKNOWN INDICATION
     Route: 048
     Dates: start: 20191021

REACTIONS (1)
  - Death [Fatal]
